FAERS Safety Report 5409368-0 (Version None)
Quarter: 2007Q3

REPORT INFORMATION
  Report Type: 
  Country: None (occurrence: None)
  Receive Date: 20070807
  Receipt Date: 20070807
  Transmission Date: 20080115
  Serious: Yes (Other)
  Sender: FDA-Public Use
  Company Number: None

PATIENT
  Age: 52 Year
  Sex: Female
  Weight: 86.1834 kg

DRUGS (1)
  1. REQUIP [Suspect]
     Indication: PARKINSON'S DISEASE
     Dosage: 0.5 MG 1 TABLET 2X DAY PO
     Route: 048
     Dates: start: 20051115, end: 20070729

REACTIONS (4)
  - ABNORMAL BEHAVIOUR [None]
  - IMPAIRED WORK ABILITY [None]
  - PATHOLOGICAL GAMBLING [None]
  - SOMNOLENCE [None]
